FAERS Safety Report 12684669 (Version 3)
Quarter: 2016Q3

REPORT INFORMATION
  Report Type: Report from Study
  Country: NL (occurrence: NL)
  Receive Date: 20160825
  Receipt Date: 20160929
  Transmission Date: 20161109
  Serious: Yes (Hospitalization, Other)
  Sender: FDA-Public Use
  Company Number: PHHO2016NL011480

PATIENT
  Age: 58 Year
  Sex: Male
  Weight: 78 kg

DRUGS (19)
  1. MYCOPHENOLATE MOFETIL. [Suspect]
     Active Substance: MYCOPHENOLATE MOFETIL
     Indication: RENAL TRANSPLANT
     Dosage: 1000 MG, BID
     Route: 048
     Dates: start: 20160804
  2. PREDNISOLONE. [Suspect]
     Active Substance: PREDNISOLONE
     Indication: RENAL TRANSPLANT
     Dosage: 15 MG, QD
     Route: 048
     Dates: start: 20160804
  3. ROCURONIUM BROMIDE. [Concomitant]
     Active Substance: ROCURONIUM BROMIDE
     Indication: ANAESTHESIA
     Dosage: 60 MG, ONCE/SINGLE (50+10)
     Route: 042
     Dates: start: 20160804, end: 20160804
  4. FENYLEFRIN [Concomitant]
     Indication: ANAESTHESIA
     Dosage: UNK
     Route: 065
     Dates: start: 20160804, end: 20160804
  5. INSULIN [Concomitant]
     Active Substance: INSULIN NOS
     Indication: DIABETES MELLITUS
     Dosage: VARIABLE
     Route: 058
     Dates: start: 20160804
  6. AMLODIPINE [Concomitant]
     Active Substance: AMLODIPINE BESYLATE
     Indication: HYPERTENSION
     Dosage: 5 MG, QD
     Route: 048
     Dates: start: 20160831
  7. VALGANCICLOVIR. [Concomitant]
     Active Substance: VALGANCICLOVIR
     Indication: PROPHYLAXIS
     Dosage: 450 MG, QD
     Route: 048
     Dates: start: 20160805
  8. CEFAZOLIN [Concomitant]
     Active Substance: CEFAZOLIN
     Indication: PROPHYLAXIS
     Dosage: 1000 MG, TID
     Route: 042
     Dates: start: 20160804, end: 20160804
  9. PIRITRAMIDE [Concomitant]
     Active Substance: PIRITRAMIDE
     Indication: ANAESTHESIA
     Dosage: 3 MG, TID
     Route: 042
     Dates: start: 20160804, end: 20160804
  10. SUFENTANIL [Concomitant]
     Active Substance: SUFENTANIL
     Indication: ANAESTHESIA
     Dosage: 25 MG, BID
     Route: 042
     Dates: start: 20160804, end: 20160804
  11. FENYLEFRIN [Concomitant]
     Indication: HYPOTENSION
  12. TAMSULOSIN [Concomitant]
     Active Substance: TAMSULOSIN
     Indication: BENIGN PROSTATIC HYPERPLASIA
     Dosage: 0.4 MG, QD
     Route: 048
     Dates: start: 20160804
  13. SIMULECT [Suspect]
     Active Substance: BASILIXIMAB
     Indication: RENAL TRANSPLANT
     Dosage: 20 MG, ONCE/SINGLE
     Route: 042
     Dates: start: 20160804, end: 20160804
  14. PROPOFOL. [Concomitant]
     Active Substance: PROPOFOL
     Indication: ANAESTHESIA
     Dosage: 120 MG, ONCE/SINGLE
     Route: 042
     Dates: start: 20160804, end: 20160804
  15. COTRIMOXAZOLE [Concomitant]
     Active Substance: SULFAMETHOXAZOLE\TRIMETHOPRIM
     Indication: PROPHYLAXIS
     Dosage: 480 MG, QD
     Route: 048
     Dates: start: 20160806
  16. OMEPRAZOLE. [Concomitant]
     Active Substance: OMEPRAZOLE
     Indication: PROPHYLAXIS
     Dosage: 40 MG, BID
     Route: 048
     Dates: start: 20160804
  17. CFZ533 [Suspect]
     Active Substance: INVESTIGATIONAL PRODUCT
     Indication: RENAL TRANSPLANT
     Dosage: 780 MG, ONCE/SINGLE
     Route: 042
     Dates: start: 20160804, end: 20160804
  18. CFZ533 [Suspect]
     Active Substance: INVESTIGATIONAL PRODUCT
     Dosage: 780 MG, ONCE/SINGLE
     Route: 042
     Dates: start: 20160810
  19. PIRITRAMIDE [Concomitant]
     Active Substance: PIRITRAMIDE
     Indication: PAIN

REACTIONS (2)
  - Kidney transplant rejection [Recovering/Resolving]
  - Amylase increased [Recovered/Resolved]

NARRATIVE: CASE EVENT DATE: 20160804
